FAERS Safety Report 7096038-9 (Version None)
Quarter: 2010Q4

REPORT INFORMATION
  Report Type: 
  Country: None (occurrence: None)
  Receive Date: 20101111
  Receipt Date: 20090608
  Transmission Date: 20110411
  Serious: No
  Sender: FDA-Public Use
  Company Number: US-KINGPHARMUSA00001-K200900689

PATIENT
  Age: 60 Year
  Sex: Female
  Weight: 52.608 kg

DRUGS (2)
  1. LEVOXYL [Suspect]
     Indication: HYPOTHYROIDISM
     Dosage: 50 MCG, QD
     Route: 048
  2. LEVOXYL [Suspect]
     Dosage: 75 MCG, UNK
     Dates: start: 20070101

REACTIONS (2)
  - FATIGUE [None]
  - ORAL DISCOMFORT [None]
